FAERS Safety Report 6749691-0 (Version None)
Quarter: 2010Q2

REPORT INFORMATION
  Report Type: 
  Country: None (occurrence: None)
  Receive Date: 20100601
  Receipt Date: 20100520
  Transmission Date: 20101027
  Serious: Yes (Other)
  Sender: FDA-Public Use
  Company Number: US-ASTRAZENECA-2010SE23498

PATIENT
  Age: 893 Month
  Sex: Female
  Weight: 81.6 kg

DRUGS (1)
  1. SEROQUEL [Suspect]
     Indication: SEDATION
     Dosage: 25 MG - 37.5 MG TID AND PRN
     Route: 048
     Dates: start: 20100201

REACTIONS (3)
  - FALL [None]
  - RIB FRACTURE [None]
  - SEDATION [None]
